FAERS Safety Report 25608370 (Version 1)
Quarter: 2025Q3

REPORT INFORMATION
  Report Type: Spontaneous
  Country: CA (occurrence: CA)
  Receive Date: 20250726
  Receipt Date: 20250726
  Transmission Date: 20251021
  Serious: Yes (Other)
  Sender: CELLTRION
  Company Number: CA-CELLTRION INC.-2025CA023175

PATIENT

DRUGS (5)
  1. INFLIXIMAB [Suspect]
     Active Substance: INFLIXIMAB
     Indication: Colitis ulcerative
     Route: 042
     Dates: start: 20250527
  2. INFLIXIMAB [Suspect]
     Active Substance: INFLIXIMAB
     Dosage: MAINTENANCE - 500 MG - IV (INTRAVENOUS) EVERY 4 WEEKS
     Route: 042
  3. INFLIXIMAB [Suspect]
     Active Substance: INFLIXIMAB
     Dosage: INFUSED AT Q4 WEEKS FREQUENCY TODAY
     Route: 042
  4. MESALAMINE [Concomitant]
     Active Substance: MESALAMINE
     Indication: Product used for unknown indication
     Route: 048
  5. MESALAMINE [Concomitant]
     Active Substance: MESALAMINE

REACTIONS (7)
  - Haematochezia [Unknown]
  - Condition aggravated [Unknown]
  - Abdominal distension [Unknown]
  - Inflammation [Unknown]
  - Diarrhoea [Unknown]
  - Abdominal pain [Unknown]
  - Off label use [Unknown]
